FAERS Safety Report 14512268 (Version 1)
Quarter: 2018Q1

REPORT INFORMATION
  Report Type: Spontaneous
  Country: US (occurrence: US)
  Receive Date: 20180209
  Receipt Date: 20180209
  Transmission Date: 20180509
  Serious: Yes (Other)
  Sender: FDA-Public Use
  Company Number: US-SAOL THERAPEUTICS-2018SAO00069

PATIENT
  Age: 15 Year
  Sex: Female
  Weight: 44 kg

DRUGS (2)
  1. LIORESAL [Suspect]
     Active Substance: BACLOFEN
     Dosage: 76.89 ?G, \DAY
  2. LIORESAL [Suspect]
     Active Substance: BACLOFEN
     Indication: MUSCLE SPASTICITY
     Dosage: 158.9 ?G, \DAY
     Route: 037

REACTIONS (3)
  - Implant site infection [Unknown]
  - Proteus infection [Unknown]
  - Staphylococcal infection [Unknown]

NARRATIVE: CASE EVENT DATE: 20180112
